FAERS Safety Report 20806578 (Version 12)
Quarter: 2023Q2

REPORT INFORMATION
  Report Type: Spontaneous
  Country: CA (occurrence: CA)
  Receive Date: 20220510
  Receipt Date: 20230628
  Transmission Date: 20230721
  Serious: Yes (Other)
  Sender: FDA-Public Use
  Company Number: CA-CELLTRION INC.-2022CA006026

PATIENT

DRUGS (11)
  1. INFLECTRA [Suspect]
     Active Substance: INFLIXIMAB-DYYB
     Indication: Colitis ulcerative
     Dosage: 7.5 MG/KG, EVERY 7 WEEKS, 7.5 MG/KG ROUNDED TO NEAREST HUNDRED
     Route: 042
     Dates: start: 20220425
  2. INFLECTRA [Suspect]
     Active Substance: INFLIXIMAB-DYYB
     Dosage: 1 DF, 7.5 MG/KG Q 7 WEEKS INCREASE TO NEXT HUNDREDTH
     Route: 042
     Dates: start: 20220425
  3. INFLECTRA [Suspect]
     Active Substance: INFLIXIMAB-DYYB
     Dosage: 7.5 MG/KG, EVERY 7 WEEKS
     Route: 042
     Dates: start: 20220617
  4. INFLECTRA [Suspect]
     Active Substance: INFLIXIMAB-DYYB
     Dosage: 700 MG, SUPPOSED TO RECEIVE 7.5MG/KG
     Route: 042
     Dates: start: 20220803
  5. INFLECTRA [Suspect]
     Active Substance: INFLIXIMAB-DYYB
     Dosage: 700 MG, SUPPOSED TO RECEIVE 7.5MG/KG
     Route: 042
     Dates: start: 20220922
  6. INFLECTRA [Suspect]
     Active Substance: INFLIXIMAB-DYYB
     Dosage: 7.5 MG/KG Q 7 WEEKS INCREASE TO NEXT HUNDREDTH
     Route: 042
     Dates: start: 20221111
  7. INFLECTRA [Suspect]
     Active Substance: INFLIXIMAB-DYYB
     Dosage: 7.5 MG/KG Q 7 WEEKS INCREASE TO NEXT HUNDREDTH
     Route: 042
     Dates: start: 20221219
  8. INFLECTRA [Suspect]
     Active Substance: INFLIXIMAB-DYYB
     Dosage: 700 MG(7.5MG/KG) EVERY 7 WEEKS
     Route: 042
     Dates: start: 20230323
  9. INFLECTRA [Suspect]
     Active Substance: INFLIXIMAB-DYYB
     Dosage: 700 MG AFTER 6 WEEKS, SUPPOSED TO RECEIVE 7.5MG/KG AND ROUND UP TO CLOSEST HUNDREDTH
     Route: 042
     Dates: start: 20230620
  10. INFLECTRA [Suspect]
     Active Substance: INFLIXIMAB-DYYB
     Dosage: 700 MG AFTER 6 WEEKS, SUPPOSED TO RECEIVE 7.5MG/KG AND ROUND UP TO CLOSEST HUNDREDTH
     Route: 042
     Dates: start: 20230620
  11. INFLECTRA [Suspect]
     Active Substance: INFLIXIMAB-DYYB
     Dosage: 700 MG AFTER 6 WEEKS, SUPPOSED TO RECEIVE 7.5MG/KG AND ROUND UP TO CLOSEST HUNDREDTH
     Route: 042
     Dates: start: 20230620

REACTIONS (12)
  - Haematochezia [Not Recovered/Not Resolved]
  - Sinusitis bacterial [Recovered/Resolved]
  - Therapeutic response shortened [Unknown]
  - Off label use [Unknown]
  - Off label use [Unknown]
  - Intentional product use issue [Unknown]
  - Incorrect dose administered [Unknown]
  - Inappropriate schedule of product administration [Unknown]
  - Fatigue [Unknown]
  - Mucous stools [Not Recovered/Not Resolved]
  - Weight increased [Unknown]
  - Abdominal discomfort [Not Recovered/Not Resolved]

NARRATIVE: CASE EVENT DATE: 20220425
